FAERS Safety Report 8197483-0 (Version None)
Quarter: 2012Q1

REPORT INFORMATION
  Report Type: 
  Country: None (occurrence: None)
  Receive Date: 20120309
  Receipt Date: 20120229
  Transmission Date: 20120608
  Serious: Yes (Other)
  Sender: FDA-Public Use
  Company Number: GB-ROCHE-1044287

PATIENT
  Age: 33 Year
  Sex: Male
  Weight: 114 kg

DRUGS (14)
  1. CLOZARIL [Suspect]
     Indication: SCHIZOPHRENIA
     Dosage: DRUG WITHDRAWN
     Route: 048
     Dates: start: 20100622, end: 20111223
  2. METFORMIN HCL [Concomitant]
     Route: 065
  3. OMEPRAZOLE [Concomitant]
     Route: 065
  4. DIAZEPAM [Concomitant]
     Route: 065
     Dates: start: 20101101
  5. HYOSCINE [Concomitant]
     Dosage: REPORTED AS SCOPODERM
     Route: 062
  6. ZOPICLONE [Concomitant]
     Route: 065
  7. NALTREXONE [Concomitant]
     Route: 048
     Dates: start: 20101101
  8. ARIPIPRAZOLE [Concomitant]
     Route: 048
     Dates: start: 20110801
  9. ZOPICLONE [Concomitant]
     Route: 048
     Dates: start: 20101101
  10. FLUOXETINE HCL [Concomitant]
     Route: 048
     Dates: start: 20101101
  11. PEGINTERFERON ALFA-2A [Suspect]
     Indication: HEPATITIS C
     Route: 058
     Dates: start: 20110701
  12. DIAZEPAM [Concomitant]
     Route: 048
  13. RIBAVIRIN [Suspect]
     Indication: HEPATITIS C
     Route: 065
     Dates: start: 20110701, end: 20111230
  14. INTERFERON ALFA [Suspect]
     Indication: HEPATITIS C
     Route: 058
     Dates: start: 20110715

REACTIONS (9)
  - PLATELET COUNT DECREASED [None]
  - OROPHARYNGEAL PAIN [None]
  - NEUTROPENIA [None]
  - OBESITY [None]
  - LEUKOPENIA [None]
  - NEUTROPHIL COUNT DECREASED [None]
  - WHITE BLOOD CELL COUNT DECREASED [None]
  - MALAISE [None]
  - HYPERHIDROSIS [None]
